FAERS Safety Report 9450202 (Version 1)
Quarter: 2013Q3

REPORT INFORMATION
  Report Type: Report from Study
  Country: ES (occurrence: ES)
  Receive Date: 20130809
  Receipt Date: 20130809
  Transmission Date: 20140515
  Serious: Yes (Hospitalization)
  Sender: FDA-Public Use
  Company Number: ES-SANOFI-AVENTIS-2013SA078663

PATIENT
  Age: 70 Year
  Sex: Male
  Weight: 54 kg

DRUGS (8)
  1. TAXOTERE [Suspect]
     Indication: NON-SMALL CELL LUNG CANCER
     Route: 042
     Dates: start: 20130612, end: 20130703
  2. SITAGLIPTIN PHOSPHATE [Concomitant]
  3. OMEPRAZOLE [Concomitant]
  4. SIMVASTATIN [Concomitant]
  5. ADIRO [Concomitant]
  6. GLIPIZIDE [Concomitant]
  7. INDACATEROL MALEATE [Concomitant]
  8. ENALAPRIL [Concomitant]

REACTIONS (5)
  - Pneumonia [Recovered/Resolved]
  - Anaemia [Recovered/Resolved]
  - Neutropenia [Recovered/Resolved]
  - Renal failure acute [Recovered/Resolved]
  - Urinary retention [Recovered/Resolved]
